FAERS Safety Report 7982103-8 (Version None)
Quarter: 2011Q4

REPORT INFORMATION
  Report Type: 
  Country: None (occurrence: None)
  Receive Date: 20111215
  Receipt Date: 20111208
  Transmission Date: 20120403
  Serious: Yes (Other)
  Sender: FDA-Public Use
  Company Number: US-B.I. PHARMACEUTICALS,INC./RIDGEFIELD-2011-EU-01005GD

PATIENT
  Sex: Female

DRUGS (4)
  1. HEPARIN [Suspect]
     Indication: ANTICOAGULANT THERAPY
  2. WARFARIN SODIUM [Suspect]
     Indication: ANTICOAGULANT THERAPY
  3. DIPYRIDAMOLE [Suspect]
  4. ASPIRIN [Suspect]
     Route: 048

REACTIONS (1)
  - VAGINAL HAEMORRHAGE [None]
